FAERS Safety Report 20566345 (Version 1)
Quarter: 2022Q1

REPORT INFORMATION
  Report Type: Spontaneous
  Country: CA (occurrence: CA)
  Receive Date: 20220308
  Receipt Date: 20220308
  Transmission Date: 20220424
  Serious: Yes (Disabling)
  Sender: FDA-Public Use
  Company Number: CA-TEVA-2022-CA-2013132

PATIENT
  Age: 32 Year
  Sex: Male
  Weight: 89 kg

DRUGS (5)
  1. VENLAFAXINE HYDROCHLORIDE [Suspect]
     Active Substance: VENLAFAXINE HYDROCHLORIDE
     Indication: Depression
     Dosage: 187.5 MILLIGRAM DAILY;
     Route: 048
  2. VENLAFAXINE HYDROCHLORIDE [Suspect]
     Active Substance: VENLAFAXINE HYDROCHLORIDE
     Dosage: 225 MILLIGRAM DAILY;
     Route: 048
  3. VENLAFAXINE HYDROCHLORIDE [Suspect]
     Active Substance: VENLAFAXINE HYDROCHLORIDE
     Route: 048
  4. CLOBAZAM [Concomitant]
     Active Substance: CLOBAZAM
  5. LAMOTRIGINE [Concomitant]
     Active Substance: LAMOTRIGINE

REACTIONS (3)
  - Anger [Unknown]
  - Cold sweat [Unknown]
  - Insomnia [Unknown]
